FAERS Safety Report 4512938-5 (Version None)
Quarter: 2004Q4

REPORT INFORMATION
  Report Type: 
  Country: None (occurrence: None)
  Receive Date: 20041122
  Receipt Date: 20041122
  Transmission Date: 20050328
  Serious: Yes (Hospitalization, Other)
  Sender: FDA-Public Use
  Company Number: None

PATIENT
  Age: 5 Year
  Sex: Male
  Weight: 19.5047 kg

DRUGS (2)
  1. TRIOTANN PEDIATRIC SUSPENSION [Suspect]
     Indication: POSTNASAL DRIP
     Dosage: 1 TEASPOON ORALLY   PARTIAL DOSE
     Route: 048
     Dates: start: 20041007
  2. PHENCHLOR TANNATE PEDIATRIC SUSPENSION [Suspect]
     Indication: POSTNASAL DRIP
     Dosage: 1 TEASPOONFUL ORALLY   PARTIAL DOSE
     Route: 048
     Dates: start: 20041007

REACTIONS (8)
  - ABDOMINAL STRANGULATED HERNIA [None]
  - ASTHMA [None]
  - CONDITION AGGRAVATED [None]
  - COUGH [None]
  - FOOD ALLERGY [None]
  - MEDICATION ERROR [None]
  - RASH MACULAR [None]
  - URTICARIA [None]
